FAERS Safety Report 4511662-2 (Version None)
Quarter: 2004Q4

REPORT INFORMATION
  Report Type: 
  Country: None (occurrence: None)
  Receive Date: 20041119
  Receipt Date: 20041105
  Transmission Date: 20050328
  Serious: Yes (Death)
  Sender: FDA-Public Use
  Company Number: RENA-11019

PATIENT
  Age: 63 Year
  Sex: Female

DRUGS (3)
  1. RENAGEL [Suspect]
     Indication: HYPERPHOSPHATAEMIA
     Dosage: 0.403 G TID PO
     Route: 048
     Dates: start: 20020529, end: 20021009
  2. RENAGEL [Suspect]
     Indication: HYPERPHOSPHATAEMIA
     Dosage: 4.836 G DAILY PO
     Route: 048
     Dates: start: 20021010, end: 20040502
  3. RENAGEL [Suspect]
     Indication: HYPERPHOSPHATAEMIA
     Dosage: 8.8 G DAILY PO
     Route: 048
     Dates: start: 20040503, end: 20040503

REACTIONS (4)
  - BREAST CANCER METASTATIC [None]
  - DYSPHAGIA [None]
  - NAUSEA [None]
  - OESOPHAGEAL DISORDER [None]
